FAERS Safety Report 14649914 (Version 1)
Quarter: 2018Q1

REPORT INFORMATION
  Report Type: Spontaneous
  Country: US (occurrence: US)
  Receive Date: 20180316
  Receipt Date: 20180316
  Transmission Date: 20180509
  Serious: No
  Sender: FDA-Public Use
  Company Number: US-BRAEBURN PHARMACEUTICALS, INC.-2018BBN00004

PATIENT
  Age: 30 Year
  Sex: Female
  Weight: 47.17 kg

DRUGS (3)
  1. PROBUPHINE [Suspect]
     Active Substance: BUPRENORPHINE HYDROCHLORIDE
     Indication: DRUG DEPENDENCE
     Dosage: 4 RODS IN LEFT ARM
     Route: 059
     Dates: start: 20170113, end: 20170713
  2. PROBUPHINE [Suspect]
     Active Substance: BUPRENORPHINE HYDROCHLORIDE
     Dosage: 4 RODS IN RIGHT ARM
     Route: 059
     Dates: start: 20170713
  3. PRENATAL VITAMIN [Concomitant]
     Active Substance: VITAMINS

REACTIONS (11)
  - Pharyngitis streptococcal [Unknown]
  - Dizziness [Recovering/Resolving]
  - Hot flush [Not Recovered/Not Resolved]
  - Nausea [Recovering/Resolving]
  - Rhinorrhoea [Recovering/Resolving]
  - Incorrect drug administration duration [Not Recovered/Not Resolved]
  - Headache [Recovering/Resolving]
  - Malaise [Recovering/Resolving]
  - Influenza like illness [Unknown]
  - Nasal congestion [Recovering/Resolving]
  - Drug effect incomplete [Not Recovered/Not Resolved]

NARRATIVE: CASE EVENT DATE: 201801
